FAERS Safety Report 20593707 (Version 1)
Quarter: 2022Q1

REPORT INFORMATION
  Report Type: Spontaneous
  Country: BR (occurrence: BR)
  Receive Date: 20220315
  Receipt Date: 20220315
  Transmission Date: 20220423
  Serious: No
  Sender: FDA-Public Use
  Company Number: BR-AMGEN-BRASP2022043815

PATIENT
  Sex: Male

DRUGS (1)
  1. PEGFILGRASTIM [Suspect]
     Active Substance: PEGFILGRASTIM
     Indication: Product used for unknown indication
     Dosage: 6 MILLIGRAM
     Route: 065

REACTIONS (2)
  - Wrong technique in product usage process [Unknown]
  - Device issue [Unknown]

NARRATIVE: CASE EVENT DATE: 20220225
